FAERS Safety Report 10643920 (Version 2)
Quarter: 2014Q4

REPORT INFORMATION
  Report Type: Spontaneous
  Country: US (occurrence: US)
  Receive Date: 20141210
  Receipt Date: 20141210
  Transmission Date: 20150529
  Serious: Yes (Other)
  Sender: FDA-Public Use
  Company Number: US-EMD SERONO-7036053

PATIENT
  Age: 44 Year
  Sex: Female

DRUGS (1)
  1. REBIF [Suspect]
     Active Substance: INTERFERON BETA-1A
     Indication: MULTIPLE SCLEROSIS
     Route: 058
     Dates: start: 20100216

REACTIONS (5)
  - Vertigo [Unknown]
  - Injection site bruising [Recovering/Resolving]
  - Central nervous system lesion [Unknown]
  - Optic neuritis [Recovered/Resolved]
  - Exostosis [Unknown]

NARRATIVE: CASE EVENT DATE: 201010
